FAERS Safety Report 5578263-9 (Version None)
Quarter: 2007Q4

REPORT INFORMATION
  Report Type: 
  Country: None (occurrence: None)
  Receive Date: 20071227
  Receipt Date: 20071212
  Transmission Date: 20080405
  Serious: Yes (Life-Threatening, Hospitalization)
  Sender: FDA-Public Use
  Company Number: 2007S1013278

PATIENT
  Age: 72 Year
  Sex: Female

DRUGS (4)
  1. AZATHIOPRINE [Suspect]
     Indication: PRURIGO
     Dosage: 50 MG;
     Dates: start: 20071121, end: 20071123
  2. ADCAL-D3 (LEKOVIT CA) [Concomitant]
  3. PREDNISONE [Concomitant]
  4. RISEDRONATE SODIUM [Concomitant]

REACTIONS (5)
  - ABDOMINAL PAIN [None]
  - CHILLS [None]
  - CHROMATURIA [None]
  - JAUNDICE [None]
  - SKIN DISCOLOURATION [None]
